FAERS Safety Report 6287688-8 (Version None)
Quarter: 2009Q3

REPORT INFORMATION
  Report Type: 
  Country: None (occurrence: None)
  Receive Date: 20090717
  Receipt Date: 20090113
  Transmission Date: 20100115
  Serious: Yes (Hospitalization, Other)
  Sender: FDA-Public Use
  Company Number: 2008SP005172

PATIENT
  Age: 66 Year
  Sex: Female
  Weight: 73.4827 kg

DRUGS (21)
  1. INTEGRILIN [Suspect]
     Indication: CATHETERISATION CARDIAC
     Dosage: ONCE;INBO
     Route: 040
     Dates: start: 20080103, end: 20080103
  2. INTEGRILIN [Suspect]
     Indication: CATHETERISATION CARDIAC
     Dosage: ML;QH;INDRP
     Route: 041
     Dates: start: 20080103, end: 20080103
  3. HEPARIN SODIUM [Suspect]
     Indication: CATHETERISATION CARDIAC
     Dosage: 1000 ML;IV ; IV ; 1000 ML;IV
     Route: 042
     Dates: start: 20080103, end: 20080103
  4. HEPARIN SODIUM [Suspect]
     Indication: CATHETERISATION CARDIAC
     Dosage: 1000 ML;IV ; IV ; 1000 ML;IV
     Route: 042
     Dates: start: 20080103, end: 20080103
  5. HEPARIN SODIUM [Suspect]
     Indication: CATHETERISATION CARDIAC
     Dosage: 1000 ML;IV ; IV ; 1000 ML;IV
     Route: 042
     Dates: start: 20080103, end: 20080103
  6. LIPITOR [Concomitant]
  7. SODIUM CHLORIDE [Concomitant]
  8. NITROGLYCERIN [Concomitant]
  9. ASPIRIN [Concomitant]
  10. PLAVIX [Concomitant]
  11. LOPRESSOR [Concomitant]
  12. CLONAZEPAM [Concomitant]
  13. DILTIAZEM [Concomitant]
  14. ZOCOR [Concomitant]
  15. CHANTIX [Concomitant]
  16. DILTIAZEM HCL [Concomitant]
  17. SIMVASTIN [Concomitant]
  18. REQUIP [Concomitant]
  19. METOPROLOL SUCCINATE [Concomitant]
  20. ACETAMINOPHEN [Concomitant]
  21. HYROCODONE [Concomitant]

REACTIONS (3)
  - CEREBRAL INFARCTION [None]
  - RASH [None]
  - SUBARACHNOID HAEMORRHAGE [None]
